FAERS Safety Report 9301684 (Version 2)
Quarter: 2013Q2

REPORT INFORMATION
  Report Type: Report from Study
  Country: US (occurrence: US)
  Receive Date: 20130521
  Receipt Date: 20130610
  Transmission Date: 20140414
  Serious: Yes (Life-Threatening, Hospitalization)
  Sender: FDA-Public Use
  Company Number: US-ACTELION-A-US2013-83294

PATIENT
  Age: 85 Year
  Sex: Female

DRUGS (1)
  1. TRACLEER [Suspect]
     Indication: PULMONARY ARTERIAL HYPERTENSION
     Dosage: UNK
     Route: 048

REACTIONS (5)
  - Adenocarcinoma [Recovering/Resolving]
  - Haemorrhage [Unknown]
  - Malignant tumour excision [Unknown]
  - Cardiac pacemaker insertion [Unknown]
  - Bradycardia [Recovering/Resolving]
